FAERS Safety Report 5825556-3 (Version None)
Quarter: 2008Q3

REPORT INFORMATION
  Report Type: 
  Country: None (occurrence: None)
  Receive Date: 20080725
  Receipt Date: 20080725
  Transmission Date: 20090109
  Serious: Yes (Life-Threatening, Hospitalization)
  Sender: FDA-Public Use
  Company Number: None

PATIENT
  Age: 35 Year
  Sex: Female
  Weight: 99.7913 kg

DRUGS (3)
  1. CHANTIX [Suspect]
     Indication: ANXIETY
     Dosage: START 2 WEEKS PRIOR
  2. CHANTIX [Suspect]
     Indication: SMOKING CESSATION THERAPY
     Dosage: START 2 WEEKS PRIOR
  3. CELEXA [Suspect]
     Indication: DEPRESSION
     Dosage: D/C 3 WEEKS PRIOR

REACTIONS (3)
  - HAEMODYNAMIC INSTABILITY [None]
  - LYMPHADENOPATHY [None]
  - TOXIC EPIDERMAL NECROLYSIS [None]
